FAERS Safety Report 8118683-1 (Version None)
Quarter: 2012Q1

REPORT INFORMATION
  Report Type: 
  Country: None (occurrence: None)
  Receive Date: 20120202
  Receipt Date: 20120120
  Transmission Date: 20120608
  Serious: Yes (Hospitalization)
  Sender: FDA-Public Use
  Company Number: AUR-APL-2012-00696

PATIENT
  Age: 75 Year
  Sex: Male

DRUGS (11)
  1. ALDACTONE [Suspect]
     Indication: PRODUCT USED FOR UNKNOWN INDICATION
     Dosage: ORAL
     Route: 048
     Dates: start: 20060101
  2. OMEPRAZOLE [Suspect]
     Indication: PRODUCT USED FOR UNKNOWN INDICATION
     Dosage: 20 MG (20 MG, 1 IN 1 D), ORAL
     Route: 048
     Dates: start: 20060101
  3. LANTUS [Suspect]
     Indication: TYPE 2 DIABETES MELLITUS
     Dosage: SUBCUTANEOUS
     Route: 058
  4. PENTOXIFYLLINE [Suspect]
     Indication: THROMBOSIS PROPHYLAXIS
     Dosage: (20 MG), ORAL
     Route: 048
     Dates: start: 20060101
  5. AMIODARONE HCL [Suspect]
     Indication: PRODUCT USED FOR UNKNOWN INDICATION
     Dosage: 100 MG (100 MG, 1 IN 1 D), ORAL
     Route: 048
     Dates: start: 20060101
  6. ROVAMYCINE (SPIRAMYCIN) [Suspect]
     Indication: LUNG DISORDER
     Dates: start: 20090601, end: 20090625
  7. BISOPROLOL FUMARATE [Suspect]
     Indication: CARDIAC FAILURE
     Dosage: 2.5 MG (2.5 MG, 1 IN 1 D), ORAL
     Route: 048
     Dates: start: 20060101
  8. LASIX [Suspect]
     Indication: CARDIAC FAILURE
     Dosage: (750 MG), ORAL
     Route: 048
     Dates: start: 20060101
  9. METFORMIN HCL [Suspect]
     Indication: PRODUCT USED FOR UNKNOWN INDICATION
     Dosage: 1000 MG (500 MG, 2 IN 1 D), ORAL
     Route: 048
     Dates: start: 20060101
  10. RAMIPRIL [Suspect]
     Indication: PRODUCT USED FOR UNKNOWN INDICATION
     Dosage: 10 MG (5 MG, 2 IN 1 D), ORAL
     Route: 048
     Dates: start: 20060101
  11. LEVOTHYROXINE SODIUM [Suspect]
     Indication: HYPOTHYROIDISM
     Dosage: 150 MCG (150 MCG, 1 IN 1 D), ORAL
     Route: 048
     Dates: start: 20060101

REACTIONS (3)
  - VASCULITIS [None]
  - PURPURA [None]
  - LUNG DISORDER [None]
